FAERS Safety Report 9907724 (Version 2)
Quarter: 2014Q1

REPORT INFORMATION
  Report Type: Spontaneous
  Country: US (occurrence: US)
  Receive Date: 20140219
  Receipt Date: 20140331
  Transmission Date: 20141002
  Serious: Yes (Other)
  Sender: FDA-Public Use
  Company Number: US-BIOGENIDEC-2014BI012712

PATIENT
  Age: 32 Year
  Sex: Female

DRUGS (19)
  1. TECFIDERA [Suspect]
     Indication: MULTIPLE SCLEROSIS
     Route: 048
     Dates: start: 20130716, end: 20130722
  2. TECFIDERA [Suspect]
     Indication: MULTIPLE SCLEROSIS
     Route: 048
     Dates: start: 20130723
  3. METHYLPHENIDATE [Concomitant]
  4. PREGABALIN [Concomitant]
  5. DONEPEZIL [Concomitant]
  6. FUROSEMIDE [Concomitant]
  7. POTASSIUM CHLORIDE [Concomitant]
  8. HYDROXYZINE [Concomitant]
  9. PROAIR [Concomitant]
  10. ESOMEPRAZOLE [Concomitant]
  11. BACLOFEN [Concomitant]
  12. ABILIFY [Concomitant]
  13. BUPROPION [Concomitant]
  14. FENOFIBRATE [Concomitant]
  15. PROMETHAZINE [Concomitant]
  16. CEFADROXIL [Concomitant]
  17. BUDESONIDE-FORMOTEROL FUMARATE [Concomitant]
  18. FISH OIL [Concomitant]
  19. CHOLECALCIFEROL [Concomitant]

REACTIONS (3)
  - Abortion spontaneous [Recovered/Resolved]
  - Vaginal haemorrhage [Unknown]
  - Muscle spasms [Unknown]
